FAERS Safety Report 6626025-3 (Version None)
Quarter: 2010Q1

REPORT INFORMATION
  Report Type: 
  Country: None (occurrence: None)
  Receive Date: 20100310
  Receipt Date: 20100224
  Transmission Date: 20100710
  Serious: Yes (Life-Threatening, Hospitalization)
  Sender: FDA-Public Use
  Company Number: CH-BAYER-201017047GPV

PATIENT
  Age: 28 Year
  Sex: Male

DRUGS (11)
  1. ADALAT [Suspect]
     Indication: HYPERTENSION
     Route: 048
     Dates: start: 20091013, end: 20091014
  2. ITRACONAZOLE [Interacting]
     Indication: DRUG USE FOR UNKNOWN INDICATION
     Dosage: UNIT DOSE: 100 MG
     Route: 065
  3. CLARITHROMYCIN [Interacting]
     Indication: DRUG USE FOR UNKNOWN INDICATION
     Dosage: UNIT DOSE: 125 MG
     Route: 048
  4. BACTRIM [Concomitant]
     Route: 065
  5. VALACICLOVIR [Concomitant]
     Dosage: UNIT DOSE: 500 MG
     Route: 048
  6. TORSEMIDE [Concomitant]
     Dosage: UNIT DOSE: 5 MG
     Route: 065
  7. CYCLOSPORINE [Concomitant]
     Dosage: UNIT DOSE: 75 MG
     Route: 048
  8. PREDNISOLONE [Concomitant]
     Dosage: UNIT DOSE: 7.5 MG
     Route: 065
  9. ESOMEPRAZOLE [Concomitant]
     Route: 048
  10. ZOLPIDEM [Concomitant]
     Dosage: UNIT DOSE: 10 MG
     Route: 065
  11. BROMAZEPAM [Concomitant]
     Dosage: UNIT DOSE: 1.5 MG
     Route: 065

REACTIONS (1)
  - HYPOTENSION [None]
